FAERS Safety Report 9826111 (Version 1)
Quarter: 2014Q1

REPORT INFORMATION
  Report Type: Spontaneous
  Country: US (occurrence: US)
  Receive Date: 20140117
  Receipt Date: 20140117
  Transmission Date: 20141002
  Serious: Yes (Other)
  Sender: FDA-Public Use
  Company Number: US-TEVA-456193USA

PATIENT
  Age: 26 Year
  Sex: Female
  Weight: 63.56 kg

DRUGS (2)
  1. PARAGARD 380A [Suspect]
     Indication: CONTRACEPTION
     Route: 015
     Dates: start: 20131031, end: 20140108
  2. PARAGARD 380A [Suspect]
     Route: 015
     Dates: start: 20140108

REACTIONS (2)
  - Gardnerella infection [Unknown]
  - Device dislocation [Recovered/Resolved]
